FAERS Safety Report 5468326-0 (Version None)
Quarter: 2007Q3

REPORT INFORMATION
  Report Type: 
  Country: None (occurrence: None)
  Receive Date: 20070926
  Receipt Date: 20070918
  Transmission Date: 20080115
  Serious: Yes (Hospitalization)
  Sender: FDA-Public Use
  Company Number: A0682706A

PATIENT
  Age: 79 Year
  Sex: Male

DRUGS (15)
  1. COREG [Suspect]
     Dosage: 25MG PER DAY
     Route: 048
  2. AVAPRO [Concomitant]
  3. PREVACID [Concomitant]
  4. PLAVIX [Concomitant]
  5. SIMVASTATIN [Concomitant]
  6. AMLODIPINE [Concomitant]
  7. SERTRALINE [Concomitant]
  8. COREG [Concomitant]
  9. CLOPIDOGREL [Concomitant]
  10. UNKNOWN MEDICATION [Concomitant]
  11. VITAMIN B-12 [Concomitant]
  12. CENTRUM SILVER [Concomitant]
  13. VITAMIN E [Concomitant]
  14. PERCOCET [Concomitant]
  15. UNKNOWN MEDICATION [Concomitant]

REACTIONS (7)
  - CARDIAC OPERATION [None]
  - CARDIAC PACEMAKER INSERTION [None]
  - DEPRESSION [None]
  - GASTRIC CANCER [None]
  - NEOPLASM MALIGNANT [None]
  - PROSTATE CANCER [None]
  - STENT PLACEMENT [None]
